FAERS Safety Report 6502061-2 (Version None)
Quarter: 2009Q4

REPORT INFORMATION
  Report Type: 
  Country: None (occurrence: None)
  Receive Date: 20091216
  Receipt Date: 20091211
  Transmission Date: 20100525
  Serious: Yes (Hospitalization)
  Sender: FDA-Public Use
  Company Number: JP-MERCK-0908USA04949

PATIENT
  Age: 41 Year
  Sex: Female
  Weight: 41 kg

DRUGS (6)
  1. PEPCID [Suspect]
     Indication: GASTRITIS
     Route: 048
     Dates: start: 20090729, end: 20090813
  2. CIPROXAN [Suspect]
     Indication: PNEUMONIA LEGIONELLA
     Route: 041
     Dates: start: 20090805, end: 20090813
  3. CLARITH [Suspect]
     Indication: PNEUMONIA LEGIONELLA
     Route: 048
     Dates: start: 20090808, end: 20090813
  4. AMBISOME [Suspect]
     Indication: PNEUMONIA LEGIONELLA
     Route: 041
     Dates: start: 20090804, end: 20090813
  5. DAUNORUBICIN HYDROCHLORIDE [Concomitant]
     Route: 065
     Dates: start: 20090730, end: 20090802
  6. CYLOCIDE [Concomitant]
     Route: 065
     Dates: start: 20090730, end: 20090802

REACTIONS (1)
  - PURPURA [None]
